FAERS Safety Report 5729294-7 (Version None)
Quarter: 2008Q2

REPORT INFORMATION
  Report Type: 
  Country: None (occurrence: None)
  Receive Date: 20080506
  Receipt Date: 20080505
  Transmission Date: 20081010
  Serious: Yes (Hospitalization)
  Sender: FDA-Public Use
  Company Number: SG-RB-001130-08

PATIENT
  Sex: Female

DRUGS (3)
  1. SUBUTEX [Suspect]
     Indication: DRUG DEPENDENCE
     Dosage: DOSE UNKNOWN
     Route: 060
     Dates: start: 20030101
  2. SUBUTEX [Suspect]
     Dosage: GRIND 1-3  TABLETS INTO POWDER FORM, MIX WITH HOT WATER AND INJECT INTO RADIAL OR CAROTID ARTERIES
     Route: 013
  3. SUBUTEX [Suspect]
     Dosage: GRIND 1-3 TABLETS INTO POWDER FORM,MIX WITH HOT WATER AND INJECT INTRAVENOUSLY.
     Route: 042

REACTIONS (11)
  - CEREBRAL INFARCTION [None]
  - COGNITIVE DISORDER [None]
  - DRUG ABUSE [None]
  - DRUG DEPENDENCE [None]
  - DRUG WITHDRAWAL SYNDROME [None]
  - EMBOLISM [None]
  - INCORRECT ROUTE OF DRUG ADMINISTRATION [None]
  - INTENTIONAL DRUG MISUSE [None]
  - NUCLEAR MAGNETIC RESONANCE IMAGING BRAIN ABNORMAL [None]
  - VISION BLURRED [None]
  - WRONG TECHNIQUE IN DRUG USAGE PROCESS [None]
